FAERS Safety Report 8144798-8 (Version None)
Quarter: 2012Q1

REPORT INFORMATION
  Report Type: 
  Country: None (occurrence: None)
  Receive Date: 20120217
  Receipt Date: 20120216
  Transmission Date: 20120608
  Serious: Yes (Other)
  Sender: FDA-Public Use
  Company Number: US-PFIZER INC-2012042258

PATIENT

DRUGS (2)
  1. LIPITOR [Suspect]
     Dosage: UNK
  2. PROCARDIA XL [Suspect]
     Dosage: UNK

REACTIONS (2)
  - NERVE INJURY [None]
  - HERPES ZOSTER [None]
